FAERS Safety Report 14926315 (Version 2)
Quarter: 2018Q3

REPORT INFORMATION
  Report Type: Spontaneous
  Country: US (occurrence: US)
  Receive Date: 20180523
  Receipt Date: 20180808
  Transmission Date: 20181010
  Serious: No
  Sender: FDA-Public Use
  Company Number: US-ASTRAZENECA-2018SE55230

PATIENT
  Age: 861 Month
  Sex: Male
  Weight: 90.7 kg

DRUGS (13)
  1. OMEPRAZOLE. [Suspect]
     Active Substance: OMEPRAZOLE
     Indication: DYSPEPSIA
     Route: 048
  2. SPIRIVA RESPIMAT [Concomitant]
     Active Substance: TIOTROPIUM BROMIDE
     Indication: ASTHMA
     Route: 055
  3. QVAR [Concomitant]
     Active Substance: BECLOMETHASONE DIPROPIONATE
     Indication: ASTHMA
     Route: 055
  4. PREDNISONE. [Concomitant]
     Active Substance: PREDNISONE
     Dates: start: 20180416
  5. DESLORATADINE. [Concomitant]
     Active Substance: DESLORATADINE
     Indication: MULTIPLE ALLERGIES
  6. MONTELUKAST SODIUM. [Concomitant]
     Active Substance: MONTELUKAST SODIUM
  7. BREO ELLIPTA [Concomitant]
     Active Substance: FLUTICASONE FUROATE\VILANTEROL TRIFENATATE
     Indication: ASTHMA
     Dosage: TWO PUFFS EVERY MORNING, DAILY
     Route: 055
  8. LEVOTHYROXINE. [Concomitant]
     Active Substance: LEVOTHYROXINE
     Indication: THYROID DISORDER
     Dates: start: 2013
  9. FASENRA [Suspect]
     Active Substance: BENRALIZUMAB
     Indication: ASTHMA
     Route: 058
     Dates: start: 20180417
  10. UNKNOWN WATER PILL [Concomitant]
     Active Substance: UNSPECIFIED INGREDIENT
  11. VENTOLIN HFA [Concomitant]
     Active Substance: ALBUTEROL SULFATE
     Indication: ASTHMA
     Route: 055
  12. HYDROCHLOROTHIAZIDE. [Concomitant]
     Active Substance: HYDROCHLOROTHIAZIDE
     Dates: start: 2013
  13. PRAMIPEXOLE. [Concomitant]
     Active Substance: PRAMIPEXOLE
     Indication: RESTLESS LEGS SYNDROME
     Route: 045
     Dates: start: 2017

REACTIONS (7)
  - Pneumonia influenzal [Unknown]
  - Asthma [Not Recovered/Not Resolved]
  - Hypertension [Recovered/Resolved]
  - Heart rate increased [Unknown]
  - Joint swelling [Unknown]
  - Peripheral swelling [Unknown]
  - Nasal congestion [Not Recovered/Not Resolved]

NARRATIVE: CASE EVENT DATE: 201804
